FAERS Safety Report 19560082 (Version 1)
Quarter: 2021Q3

REPORT INFORMATION
  Report Type: Spontaneous
  Country: US (occurrence: US)
  Receive Date: 20210715
  Receipt Date: 20210715
  Transmission Date: 20211014
  Serious: Yes (Hospitalization)
  Sender: FDA-Public Use
  Company Number: None

PATIENT
  Age: 76 Year
  Sex: Male

DRUGS (20)
  1. VITAMIN B12 [Concomitant]
     Active Substance: CYANOCOBALAMIN
  2. CYMBALTA [Concomitant]
     Active Substance: DULOXETINE HYDROCHLORIDE
  3. MORPHINE SUL ER [Concomitant]
  4. LEVOFLOXACIN. [Concomitant]
     Active Substance: LEVOFLOXACIN
  5. ALBUTEROL SULFATE. [Concomitant]
     Active Substance: ALBUTEROL SULFATE
  6. GABAPENTIN. [Concomitant]
     Active Substance: GABAPENTIN
  7. LOSARTAN/HCT [Concomitant]
     Active Substance: HYDROCHLOROTHIAZIDE\LOSARTAN POTASSIUM
  8. MIR/VASO [Concomitant]
  9. MULTIVITAMIN DAILY [Concomitant]
  10. NALTREXONE [Concomitant]
     Active Substance: NALTREXONE
  11. NEURONTIN [Suspect]
     Active Substance: GABAPENTIN
  12. RESTASUS EMU [Concomitant]
  13. CODEINE SULF [Concomitant]
  14. CIMZIA [Suspect]
     Active Substance: CERTOLIZUMAB PEGOL
     Indication: CROHN^S DISEASE
     Dosage: ?          OTHER DOSE:2 SYR;?
     Route: 058
     Dates: start: 20150918
  15. VITAMIN D3 [Concomitant]
     Active Substance: CHOLECALCIFEROL
  16. FLOVENT HFA [Concomitant]
     Active Substance: FLUTICASONE PROPIONATE
  17. CLONAZEPAM. [Concomitant]
     Active Substance: CLONAZEPAM
  18. METOPROL TAR [Concomitant]
  19. SINEMET CR [Concomitant]
     Active Substance: CARBIDOPA\LEVODOPA
  20. TOLTEODINE ER [Concomitant]

REACTIONS (1)
  - Condition aggravated [None]

NARRATIVE: CASE EVENT DATE: 20210714
